FAERS Safety Report 19259488 (Version 2)
Quarter: 2021Q2

REPORT INFORMATION
  Report Type: Report from Study
  Country: JP (occurrence: JP)
  Receive Date: 20210514
  Receipt Date: 20210603
  Transmission Date: 20210717
  Serious: Yes (Death, Hospitalization)
  Sender: FDA-Public Use
  Company Number: JP-PFIZER INC-2021533884

PATIENT
  Age: 5 Decade
  Sex: Female
  Weight: 100 kg

DRUGS (3)
  1. BRAFTOVI [Suspect]
     Active Substance: ENCORAFENIB
     Indication: RECTAL CANCER
     Dosage: UNK, 1X/DAY
     Route: 048
     Dates: start: 202102, end: 202103
  2. MEKTOVI [Suspect]
     Active Substance: BINIMETINIB
     Indication: RECTAL CANCER
     Dosage: UNK, 1X/DAY
     Route: 048
     Dates: start: 202102, end: 202103
  3. CETUXIMAB. [Concomitant]
     Active Substance: CETUXIMAB
     Indication: RECTAL CANCER
     Dosage: UNK, Q2W
     Route: 065
     Dates: start: 202102, end: 202103

REACTIONS (4)
  - Jaundice [Unknown]
  - Tumour marker increased [Unknown]
  - Pyrexia [Unknown]
  - C-reactive protein increased [Unknown]

NARRATIVE: CASE EVENT DATE: 202103
